FAERS Safety Report 12400278 (Version 1)
Quarter: 2016Q2

REPORT INFORMATION
  Report Type: Spontaneous
  Country: US (occurrence: None)
  Receive Date: 20160524
  Receipt Date: 20160524
  Transmission Date: 20160815
  Serious: Yes (Disabling)
  Sender: FDA-Public Use
  Company Number: None

PATIENT
  Age: 66 Year
  Sex: Female
  Weight: 58.51 kg

DRUGS (1)
  1. VALPROIC ACID, 250 MG [Suspect]
     Active Substance: VALPROIC ACID
     Indication: DRUG THERAPY
     Dates: start: 20160430, end: 20160430

REACTIONS (4)
  - Pharyngeal haemorrhage [None]
  - Pharyngeal oedema [None]
  - Cough [None]
  - Ear haemorrhage [None]

NARRATIVE: CASE EVENT DATE: 20160430
